FAERS Safety Report 7935543-7 (Version None)
Quarter: 2011Q4

REPORT INFORMATION
  Report Type: 
  Country: None (occurrence: None)
  Receive Date: 20111123
  Receipt Date: 20111118
  Transmission Date: 20120403
  Serious: Yes (Other)
  Sender: FDA-Public Use
  Company Number: US-BIOGENIDEC-2011BI041688

PATIENT
  Sex: Female

DRUGS (3)
  1. AVONEX [Suspect]
     Route: 030
     Dates: start: 19970901
  2. AVONEX [Suspect]
     Indication: MULTIPLE SCLEROSIS
     Route: 030
     Dates: start: 20071128
  3. AVONEX [Suspect]
     Route: 030
     Dates: end: 20070808

REACTIONS (9)
  - PYREXIA [None]
  - APHONIA [None]
  - HALLUCINATION [None]
  - HYPERSENSITIVITY [None]
  - MUSCULAR WEAKNESS [None]
  - INFLUENZA LIKE ILLNESS [None]
  - GAIT DISTURBANCE [None]
  - MUSCULOSKELETAL PAIN [None]
  - DRUG WITHDRAWAL SYNDROME [None]
